FAERS Safety Report 9856947 (Version 2)
Quarter: 2014Q1

REPORT INFORMATION
  Report Type: Spontaneous
  Country: US (occurrence: None)
  Receive Date: 20140128
  Receipt Date: 20140325
  Transmission Date: 20141002
  Serious: Yes (Other)
  Sender: FDA-Public Use
  Company Number: AEGR000232

PATIENT
  Age: 78 Year
  Sex: Male
  Weight: 88.9 kg

DRUGS (6)
  1. JUXTAPID [Suspect]
     Indication: TYPE IIA HYPERLIPIDAEMIA
     Route: 048
     Dates: start: 20131119, end: 20140107
  2. ZELIA (EZETIMIBE) TABLET [Concomitant]
  3. FOLIC ACID (FOLIC ACID) TABLET [Concomitant]
  4. ASA (ACETYLSALICYLIC ACID) TABLET [Concomitant]
  5. CRESTOR (ROSUVASTATIN CALCIUM) TABLET [Concomitant]
  6. COREG (CARVEDILOL) TABLET [Concomitant]

REACTIONS (7)
  - Diarrhoea [None]
  - Asthenia [None]
  - Heart rate increased [None]
  - Weight decreased [None]
  - Dizziness [None]
  - High fat diet [None]
  - Haematochezia [None]
